FAERS Safety Report 16693239 (Version 1)
Quarter: 2019Q4

REPORT INFORMATION
  Report Type: Spontaneous
  Country: US (occurrence: US)
  Receive Date: 20190811
  Receipt Date: 20190811
  Transmission Date: 20200122
  Serious: Yes (Congenital Anomaly, Other)
  Sender: FDA-Public Use
  Company Number: None

PATIENT
  Age: 47 Year
  Sex: Female
  Weight: 76.5 kg

DRUGS (3)
  1. AIMOVIG [Concomitant]
     Active Substance: ERENUMAB-AOOE
  2. AIMOVIG [Suspect]
     Active Substance: ERENUMAB-AOOE
     Indication: MIGRAINE
     Route: 030
     Dates: start: 20190809
  3. MOTRIN [Concomitant]
     Active Substance: IBUPROFEN

REACTIONS (5)
  - Pruritus [None]
  - Abdominal pain upper [None]
  - Migraine [None]
  - Back pain [None]
  - Diarrhoea [None]

NARRATIVE: CASE EVENT DATE: 20190811
